FAERS Safety Report 17698288 (Version 3)
Quarter: 2020Q4

REPORT INFORMATION
  Report Type: Spontaneous
  Country: US (occurrence: US)
  Receive Date: 20200423
  Receipt Date: 20201204
  Transmission Date: 20210113
  Serious: No
  Sender: FDA-Public Use
  Company Number: US-PFIZER INC-2020158793

PATIENT
  Age: 47 Year
  Sex: Female
  Weight: 86.18 kg

DRUGS (2)
  1. XELJANZ XR [Suspect]
     Active Substance: TOFACITINIB CITRATE
     Indication: RHEUMATOID ARTHRITIS
     Dosage: 11 MG, 1X/DAY
     Route: 048
     Dates: start: 202003
  2. XELJANZ XR [Suspect]
     Active Substance: TOFACITINIB CITRATE
     Indication: SYSTEMIC LUPUS ERYTHEMATOSUS
     Dosage: 11 MG
     Dates: start: 20200912

REACTIONS (5)
  - Arthralgia [Unknown]
  - Product dose omission issue [Unknown]
  - Energy increased [Unknown]
  - Sensitivity to weather change [Unknown]
  - Emotional disorder [Unknown]
